FAERS Safety Report 11208790 (Version 1)
Quarter: 2015Q2

REPORT INFORMATION
  Report Type: Spontaneous
  Country: US (occurrence: None)
  Receive Date: 20150619
  Receipt Date: 20150619
  Transmission Date: 20150821
  Serious: Yes (Disabling)
  Sender: FDA-Public Use
  Company Number: None

PATIENT
  Age: 70 Year
  Sex: Female
  Weight: 117.94 kg

DRUGS (10)
  1. XARELTO [Suspect]
     Active Substance: RIVAROXABAN
     Indication: ATRIAL FIBRILLATION
     Dosage: 15MG/20MG 1 PILL
     Route: 048
     Dates: start: 2011, end: 201505
  2. HYALURONIC AICD + ASTAXANITHIN [Concomitant]
  3. COENZYME [Concomitant]
     Active Substance: UBIDECARENONE
  4. B COMPLEX WITH C AND ZINC [Concomitant]
  5. HYDRO CHLOROTHIAZIDE [Concomitant]
  6. CITALOPRAM HYDROBROMIDE. [Concomitant]
     Active Substance: CITALOPRAM HYDROBROMIDE
  7. COMPLEXIN [Concomitant]
  8. KRILL OIL [Concomitant]
     Active Substance: DIETARY SUPPLEMENT
  9. OMANA-3 [Concomitant]
  10. ARTHRIC D3 [Concomitant]

REACTIONS (2)
  - Muscular weakness [None]
  - Pain in extremity [None]
